FAERS Safety Report 8915160 (Version 1)
Quarter: 2012Q4

REPORT INFORMATION
  Report Type: 
  Country: DE (occurrence: DE)
  Receive Date: 20121119
  Receipt Date: 20121119
  Transmission Date: 20130627
  Serious: Yes (Hospitalization)
  Sender: FDA-Public Use
  Company Number: DE-ASTRAZENECA-2012SE85381

PATIENT
  Age: 12783 Day
  Sex: Male
  Weight: 123 kg

DRUGS (2)
  1. PROPOFOL [Suspect]
     Indication: OCCUPATIONAL EXPOSURE TO DRUG
     Dosage: 8H/EVERY DAY FOR FIVE DAYS A WEEK
     Route: 055
  2. PROPOFOL [Suspect]
     Indication: OCCUPATIONAL EXPOSURE TO DRUG
     Route: 042

REACTIONS (4)
  - Left ventricular dysfunction [Recovered/Resolved with Sequelae]
  - Diaphragmatic paralysis [Recovered/Resolved with Sequelae]
  - Dyspnoea [Recovered/Resolved with Sequelae]
  - Pulmonary oedema [Recovered/Resolved with Sequelae]
